FAERS Safety Report 7878909-6 (Version None)
Quarter: 2011Q4

REPORT INFORMATION
  Report Type: 
  Country: None (occurrence: None)
  Receive Date: 20111101
  Receipt Date: 20111024
  Transmission Date: 20120403
  Serious: Yes (Hospitalization)
  Sender: FDA-Public Use
  Company Number: US-ELI_LILLY_AND_COMPANY-US201110006442

PATIENT
  Sex: Female
  Weight: 74.3 kg

DRUGS (4)
  1. PEMETREXED [Suspect]
     Indication: CERVIX CARCINOMA
     Dosage: 500 MG/M2, EVERY 3 WEEKS
     Route: 042
     Dates: start: 20110922
  2. PEMETREXED [Suspect]
     Dosage: 375 MG/M2, OTHER
  3. CISPLATIN [Suspect]
     Indication: CERVIX CARCINOMA
     Dosage: 50 MG/M2, EVERY 3 WEEKS
     Dates: start: 20110922
  4. CISPLATIN [Suspect]
     Dosage: 37.5 MG/M2, OTHER
     Route: 042

REACTIONS (1)
  - HYPOKALAEMIA [None]
